FAERS Safety Report 4816572-9 (Version None)
Quarter: 2005Q4

REPORT INFORMATION
  Report Type: 
  Country: None (occurrence: None)
  Receive Date: 20051031
  Receipt Date: 20051031
  Transmission Date: 20060501
  Serious: Yes (Hospitalization)
  Sender: FDA-Public Use
  Company Number: None

PATIENT
  Sex: Male
  Weight: 29.4 kg

DRUGS (16)
  1. TOBI [Suspect]
     Indication: BRONCHITIS
     Dosage: 300 MG BID INHAL
     Route: 055
     Dates: start: 20051001, end: 20051025
  2. ZITHROMAX [Concomitant]
  3. BECONASE AQ [Concomitant]
  4. PULMOZYME [Concomitant]
  5. FERROUS SULFATE TAB [Concomitant]
  6. PHYTONDIONE [Concomitant]
  7. MIRALAX [Concomitant]
  8. POTASSIUM CHLORIDE [Concomitant]
  9. PREDNISONE [Concomitant]
  10. URSODIOL [Concomitant]
  11. VITAMIN A [Concomitant]
  12. FLOVENTM [Concomitant]
  13. SPORANOX [Concomitant]
  14. PREVACID [Concomitant]
  15. CREON [Concomitant]
  16. ALBUTEROL [Concomitant]

REACTIONS (5)
  - ASTHENIA [None]
  - FATIGUE [None]
  - NAUSEA [None]
  - ORAL INTAKE REDUCED [None]
  - VOMITING [None]
